FAERS Safety Report 5370819-1 (Version None)
Quarter: 2007Q2

REPORT INFORMATION
  Report Type: 
  Country: None (occurrence: None)
  Receive Date: 20070614
  Receipt Date: 20070418
  Transmission Date: 20071010
  Serious: No
  Sender: FDA-Public Use
  Company Number: BDI-009428

PATIENT
  Age: 40 Year
  Sex: Female
  Weight: 93.18 kg

DRUGS (1)
  1. MULTIHANCE [Suspect]
     Indication: NUCLEAR MAGNETIC RESONANCE IMAGING
     Dosage: 20 ML ONCE IV
     Route: 042
     Dates: start: 20070322, end: 20070322

REACTIONS (6)
  - COUGH [None]
  - LACRIMATION INCREASED [None]
  - NASAL DISCOMFORT [None]
  - PRURITUS [None]
  - RASH [None]
  - THROAT IRRITATION [None]
